FAERS Safety Report 19646603 (Version 1)
Quarter: 2021Q3

REPORT INFORMATION
  Report Type: Spontaneous
  Country: US (occurrence: US)
  Receive Date: 20210731
  Receipt Date: 20210731
  Transmission Date: 20211014
  Serious: Yes (Hospitalization)
  Sender: FDA-Public Use
  Company Number: None

PATIENT
  Age: 33 Year
  Sex: Male
  Weight: 70.3 kg

DRUGS (4)
  1. G?CSF (FILGRASTIM, AMGEN) [Suspect]
     Active Substance: FILGRASTIM
     Dates: end: 20210729
  2. IFOSFAMIDE. [Suspect]
     Active Substance: IFOSFAMIDE
     Dates: end: 20210723
  3. CISPLATIN (119875) [Suspect]
     Active Substance: CISPLATIN
     Dates: end: 20210724
  4. TAXOL [Suspect]
     Active Substance: PACLITAXEL
     Dates: end: 20210719

REACTIONS (5)
  - Chills [None]
  - Pyrexia [None]
  - Pain [None]
  - Oropharyngeal pain [None]
  - White blood cell count decreased [None]

NARRATIVE: CASE EVENT DATE: 20210728
